FAERS Safety Report 6391657-7 (Version None)
Quarter: 2009Q4

REPORT INFORMATION
  Report Type: 
  Country: None (occurrence: None)
  Receive Date: 20091007
  Receipt Date: 20090928
  Transmission Date: 20100525
  Serious: Yes (Other)
  Sender: FDA-Public Use
  Company Number: US-JNJFOC-20090900961

PATIENT
  Sex: Male
  Weight: 84.37 kg

DRUGS (20)
  1. REMICADE [Suspect]
     Indication: CROHN'S DISEASE
     Dosage: TOTAL OF 4 INFUSIONS
     Route: 042
     Dates: start: 20090415, end: 20090716
  2. ENTOCORT EC [Concomitant]
  3. ACTOS [Concomitant]
  4. ALLOPURINOL [Concomitant]
  5. VITAMIN B-12 [Concomitant]
  6. VITAMIN B6 [Concomitant]
  7. ZOLOFT [Concomitant]
  8. ALPHA LIPOIC ACID [Concomitant]
  9. ASPIRIN [Concomitant]
  10. BENADRYL [Concomitant]
  11. CILOSTAZOL [Concomitant]
  12. CIPROFLOXACIN HYDROCHLORIDE [Concomitant]
  13. CRESTOR [Concomitant]
  14. FERROUS SULFATE TAB [Concomitant]
  15. FOLIC ACID [Concomitant]
  16. IRON [Concomitant]
  17. LUNESTA [Concomitant]
  18. RANEXA [Concomitant]
  19. TRAZODONE [Concomitant]
  20. PANTOPRAZOLE SODIUM [Concomitant]

REACTIONS (1)
  - LEUKAEMIA [None]
